FAERS Safety Report 5886368-8 (Version None)
Quarter: 2008Q3

REPORT INFORMATION
  Report Type: 
  Country: None (occurrence: None)
  Receive Date: 20080917
  Receipt Date: 20080910
  Transmission Date: 20090109
  Serious: Yes (Other)
  Sender: FDA-Public Use
  Company Number: US-ASTRAZENECA-2008UW18813

PATIENT
  Age: 69 Year
  Sex: Female
  Weight: 69.9 kg

DRUGS (7)
  1. ARIMIDEX [Suspect]
     Indication: BREAST CANCER
     Route: 048
     Dates: start: 20030701
  2. BONIVA [Concomitant]
  3. LIPITOR [Concomitant]
  4. TENORETIC 100 [Concomitant]
  5. CELEBREX [Concomitant]
  6. PAXIL [Concomitant]
  7. PLAQUENIL [Concomitant]

REACTIONS (5)
  - ARTHRITIS [None]
  - FRACTURE [None]
  - IMPAIRED HEALING [None]
  - INJURY [None]
  - STRESS FRACTURE [None]
